FAERS Safety Report 18487810 (Version 2)
Quarter: 2020Q4

REPORT INFORMATION
  Report Type: Report from Study
  Country: None (occurrence: US)
  Receive Date: 20201110
  Receipt Date: 20201218
  Transmission Date: 20210114
  Serious: No
  Sender: FDA-Public Use
  Company Number: US-ABBVIE-20K-163-3640593-00

PATIENT
  Sex: Female

DRUGS (1)
  1. HUMIRA [Suspect]
     Active Substance: ADALIMUMAB
     Indication: ANKYLOSING SPONDYLITIS
     Route: 058

REACTIONS (6)
  - Spondylitis [Unknown]
  - Osteitis [Unknown]
  - Inflammation [Unknown]
  - Arthritis [Unknown]
  - Fatigue [Unknown]
  - Irritable bowel syndrome [Unknown]
